FAERS Safety Report 9961814 (Version 2)
Quarter: 2014Q1

REPORT INFORMATION
  Report Type: Report from Study
  Country: US (occurrence: US)
  Receive Date: 20140305
  Receipt Date: 20140305
  Transmission Date: 20141002
  Serious: Yes (Hospitalization)
  Sender: FDA-Public Use
  Company Number: US-ABBVIE-13P-163-1111238-00

PATIENT
  Age: 69 Year
  Sex: Female

DRUGS (6)
  1. HUMIRA [Suspect]
     Indication: CROHN^S DISEASE
     Dosage: LOADING DOSE
     Dates: start: 20130619, end: 20130619
  2. HUMIRA [Suspect]
     Dates: start: 20130704
  3. MIRAPEX [Concomitant]
     Indication: RESTLESS LEGS SYNDROME
  4. PREDNISONE [Concomitant]
     Indication: CROHN^S DISEASE
  5. PREDNISONE [Concomitant]
  6. DIPENTUM [Concomitant]
     Indication: CROHN^S DISEASE

REACTIONS (3)
  - Herpes zoster [Not Recovered/Not Resolved]
  - Pain of skin [Not Recovered/Not Resolved]
  - Herpes zoster [Not Recovered/Not Resolved]
